FAERS Safety Report 9070495 (Version 2)
Quarter: 2013Q1

REPORT INFORMATION
  Report Type: Spontaneous
  Country: US (occurrence: US)
  Receive Date: 20130215
  Receipt Date: 20130301
  Transmission Date: 20140127
  Serious: Yes (Hospitalization, Other)
  Sender: FDA-Public Use
  Company Number: US-JNJFOC-20130200905

PATIENT
  Age: 55 None
  Sex: Female
  Weight: 46.72 kg

DRUGS (2)
  1. DURAGESIC [Suspect]
     Indication: PAIN
     Route: 062
  2. DURAGESIC [Suspect]
     Indication: PAIN
     Dosage: 100 UG/HR X 2 PATCHES
     Route: 062

REACTIONS (5)
  - Gallbladder disorder [Recovered/Resolved]
  - Vomiting [Unknown]
  - Surgery [Unknown]
  - Adverse event [Not Recovered/Not Resolved]
  - Product quality issue [Unknown]
